FAERS Safety Report 4273277-3 (Version None)
Quarter: 2004Q1

REPORT INFORMATION
  Report Type: 
  Country: None (occurrence: None)
  Receive Date: 20040116
  Receipt Date: 20040113
  Transmission Date: 20041129
  Serious: Yes (Hospitalization)
  Sender: FDA-Public Use
  Company Number: WAES 0401NZL00010

PATIENT
  Sex: Female

DRUGS (9)
  1. [THERAPY UNSPECIFIED] [Concomitant]
  2. FOSAMAX [Suspect]
     Route: 048
     Dates: start: 20000101, end: 20040101
  3. FOSAMAX [Suspect]
     Route: 048
     Dates: start: 20040107
  4. CILAZAPRIL [Concomitant]
  5. OMEPRAZOLE [Concomitant]
  6. PREDNISONE [Concomitant]
     Indication: ASTHMA
     Route: 048
  7. PREDNISONE [Concomitant]
  8. PREDNISONE [Concomitant]
  9. THEOPHYLLINE SODIUM GLYCINATE [Concomitant]

REACTIONS (5)
  - ASTHMA [None]
  - BONE DENSITY DECREASED [None]
  - DIARRHOEA [None]
  - DRUG INEFFECTIVE [None]
  - VOMITING [None]
